FAERS Safety Report 4751258-0 (Version None)
Quarter: 2005Q3

REPORT INFORMATION
  Report Type: 
  Country: None (occurrence: None)
  Receive Date: 20050823
  Receipt Date: 20050823
  Transmission Date: 20060218
  Serious: Yes (Life-Threatening)
  Sender: FDA-Public Use
  Company Number: None

PATIENT
  Age: 61 Year
  Sex: Female

DRUGS (1)
  1. CARBOPLATIN [Suspect]
     Dosage: 731MG   NOW   IV DRIP
     Route: 041
     Dates: start: 20050607, end: 20050607

REACTIONS (1)
  - ANAPHYLACTIC REACTION [None]
